FAERS Safety Report 13429868 (Version 12)
Quarter: 2018Q4

REPORT INFORMATION
  Report Type: Report from Study
  Country: None (occurrence: US)
  Receive Date: 20170412
  Receipt Date: 20181212
  Transmission Date: 20190204
  Serious: Yes (Life-Threatening, Hospitalization, Other)
  Sender: FDA-Public Use
  Company Number: US-ABBVIE-17K-163-1876647-00

PATIENT
  Sex: Male
  Weight: 76.27 kg

DRUGS (8)
  1. PROTONIX [Suspect]
     Active Substance: PANTOPRAZOLE SODIUM
     Indication: GASTROINTESTINAL ULCER
     Route: 065
  2. FLU SHOT [Suspect]
     Active Substance: INFLUENZA VIRUS VACCINE
     Indication: PRODUCT USED FOR UNKNOWN INDICATION
     Route: 065
  3. FOLIC ACID. [Concomitant]
     Active Substance: FOLIC ACID
     Indication: VITAMIN SUPPLEMENTATION
  4. METHOTREXATE SODIUM. [Suspect]
     Active Substance: METHOTREXATE SODIUM
     Indication: RHEUMATOID ARTHRITIS
     Route: 065
  5. HUMIRA [Suspect]
     Active Substance: ADALIMUMAB
     Route: 058
     Dates: start: 2018
  6. HUMIRA [Suspect]
     Active Substance: ADALIMUMAB
     Indication: RHEUMATOID ARTHRITIS
     Route: 058
     Dates: start: 20050623, end: 2018
  7. METHOTREXATE SODIUM. [Suspect]
     Active Substance: METHOTREXATE SODIUM
     Indication: MUSCULOSKELETAL STIFFNESS
  8. METHOTREXATE SODIUM. [Suspect]
     Active Substance: METHOTREXATE SODIUM
     Indication: SWELLING

REACTIONS (47)
  - Polyp [Unknown]
  - Blood folate decreased [Unknown]
  - Thyroid function test abnormal [Recovering/Resolving]
  - Weight decreased [Unknown]
  - Inguinal hernia [Recovered/Resolved]
  - Joint swelling [Unknown]
  - Mass [Unknown]
  - Skin lesion [Unknown]
  - Musculoskeletal pain [Unknown]
  - Arthralgia [Unknown]
  - Influenza [Unknown]
  - Diplopia [Unknown]
  - Cataract [Not Recovered/Not Resolved]
  - Asthenia [Recovered/Resolved]
  - Eye operation [Unknown]
  - Stress [Recovered/Resolved]
  - Malaise [Unknown]
  - Tooth extraction [Unknown]
  - Oral herpes [Unknown]
  - Pneumonia influenzal [Unknown]
  - Haemoglobin decreased [Unknown]
  - Gastrooesophageal reflux disease [Unknown]
  - Injection site bruising [Unknown]
  - Peripheral swelling [Recovered/Resolved]
  - Pain [Not Recovered/Not Resolved]
  - Vomiting [Unknown]
  - Peripheral swelling [Unknown]
  - Cardiovascular disorder [Unknown]
  - Gastric ulcer haemorrhage [Recovered/Resolved]
  - Fatigue [Unknown]
  - Ulcer [Unknown]
  - Nodule [Unknown]
  - Nocturia [Recovered/Resolved]
  - Musculoskeletal discomfort [Unknown]
  - Melanocytic naevus [Unknown]
  - Faeces discoloured [Recovered/Resolved]
  - Prostatic disorder [Unknown]
  - Prostatic specific antigen increased [Recovered/Resolved]
  - Joint lock [Unknown]
  - Constipation [Unknown]
  - Hypoaesthesia [Unknown]
  - Injection site bruising [Recovered/Resolved]
  - Diarrhoea [Unknown]
  - Skin cancer [Unknown]
  - Skin cancer [Recovered/Resolved]
  - Prostatomegaly [Not Recovered/Not Resolved]
  - Pain in extremity [Unknown]

NARRATIVE: CASE EVENT DATE: 2005
